FAERS Safety Report 9710277 (Version 1)
Quarter: 2013Q4

REPORT INFORMATION
  Report Type: Spontaneous
  Country: US (occurrence: US)
  Receive Date: 20131126
  Receipt Date: 20131126
  Transmission Date: 20140711
  Serious: No
  Sender: FDA-Public Use
  Company Number: US-BRISTOL-MYERS SQUIBB COMPANY-18753467

PATIENT
  Age: 61 Year
  Sex: Female
  Weight: 80.27 kg

DRUGS (4)
  1. BYETTA [Suspect]
  2. BYDUREON [Suspect]
     Route: 058
  3. LANTUS [Concomitant]
     Route: 058
  4. METFORMIN HCL [Concomitant]
     Route: 048

REACTIONS (3)
  - Injection site reaction [Not Recovered/Not Resolved]
  - Injection site bruising [Unknown]
  - Weight decreased [Unknown]
